FAERS Safety Report 19608756 (Version 1)
Quarter: 2021Q3

REPORT INFORMATION
  Report Type: Spontaneous
  Country: US (occurrence: US)
  Receive Date: 20210724
  Receipt Date: 20210724
  Transmission Date: 20211014
  Serious: Yes (Life-Threatening, Hospitalization, Disabling)
  Sender: FDA-Public Use
  Company Number: None

PATIENT
  Age: 59 Year
  Sex: Female
  Weight: 111.15 kg

DRUGS (18)
  1. TRAZODONE [Concomitant]
     Active Substance: TRAZODONE HYDROCHLORIDE
  2. FENTANYL TRANSDERMAL SYSTEM [Concomitant]
     Active Substance: FENTANYL
  3. ALBUTEROL. [Concomitant]
     Active Substance: ALBUTEROL
  4. CELEXA [Concomitant]
     Active Substance: CITALOPRAM HYDROBROMIDE
  5. BABY ASPIRIN [Concomitant]
     Active Substance: ASPIRIN
  6. VITAMIN D3 [Concomitant]
     Active Substance: CHOLECALCIFEROL
  7. TIZANIDINE. [Concomitant]
     Active Substance: TIZANIDINE
  8. PLAVIX [Concomitant]
     Active Substance: CLOPIDOGREL BISULFATE
  9. OMEPRAZOLE DR [Concomitant]
     Active Substance: OMEPRAZOLE
  10. PERCOCET [Concomitant]
     Active Substance: ACETAMINOPHEN\OXYCODONE HYDROCHLORIDE
  11. LISINOPRIL 20 MG TABLET [Suspect]
     Active Substance: LISINOPRIL
     Indication: HYPERTENSION
     Dosage: ?          QUANTITY:1 TABLET(S);?
     Route: 048
     Dates: start: 20210428, end: 20210718
  12. ZYRTEC [Concomitant]
     Active Substance: CETIRIZINE HYDROCHLORIDE
  13. JANUVIA [Concomitant]
     Active Substance: SITAGLIPTIN PHOSPHATE
  14. AZELASTINE. [Concomitant]
     Active Substance: AZELASTINE HYDROCHLORIDE
  15. CYMBALTA [Concomitant]
     Active Substance: DULOXETINE HYDROCHLORIDE
  16. GABAPENTIN. [Concomitant]
     Active Substance: GABAPENTIN
  17. LANTUS SOLOSTAR [Concomitant]
     Active Substance: INSULIN GLARGINE
  18. PRAVASTATIN. [Concomitant]
     Active Substance: PRAVASTATIN

REACTIONS (4)
  - Dizziness [None]
  - Heart rate irregular [None]
  - Blood potassium increased [None]
  - Dyskinesia [None]

NARRATIVE: CASE EVENT DATE: 20210515
